FAERS Safety Report 24904255 (Version 1)
Quarter: 2025Q1

REPORT INFORMATION
  Report Type: Spontaneous
  Country: RU (occurrence: RU)
  Receive Date: 20250130
  Receipt Date: 20250130
  Transmission Date: 20250409
  Serious: Yes (Disabling, Other)
  Sender: CHEPLAPHARM
  Company Number: RU-ROCHE-10000186829

PATIENT
  Sex: Female

DRUGS (2)
  1. CAPECITABINE [Suspect]
     Active Substance: CAPECITABINE
     Indication: Breast cancer
  2. CAPECITABINE [Suspect]
     Active Substance: CAPECITABINE
     Indication: Breast cancer

REACTIONS (3)
  - Limb injury [Unknown]
  - Skin ulcer [Unknown]
  - Dry skin [Unknown]
